FAERS Safety Report 16858185 (Version 1)
Quarter: 2019Q3

REPORT INFORMATION
  Report Type: Spontaneous
  Country: FR (occurrence: FR)
  Receive Date: 20190926
  Receipt Date: 20190926
  Transmission Date: 20191005
  Serious: Yes (Other)
  Sender: FDA-Public Use
  Company Number: FR-B.I. PHARMACEUTICALS,INC./RIDGEFIELD-2019-BI-103617

PATIENT
  Age: 70 Year
  Sex: Female

DRUGS (5)
  1. GILOTRIF [Suspect]
     Active Substance: AFATINIB
     Route: 065
     Dates: start: 201804
  2. GILOTRIF [Suspect]
     Active Substance: AFATINIB
     Route: 065
     Dates: start: 201710
  3. GILOTRIF [Suspect]
     Active Substance: AFATINIB
     Route: 065
     Dates: end: 201802
  4. GILOTRIF [Suspect]
     Active Substance: AFATINIB
     Indication: LUNG ADENOCARCINOMA
     Dosage: AFATINIB 40 MG/DAY
     Route: 065
     Dates: start: 201502, end: 201703
  5. GILOTRIF [Suspect]
     Active Substance: AFATINIB
     Route: 065
     Dates: end: 201808

REACTIONS (3)
  - Malignant neoplasm progression [Unknown]
  - Cough [Unknown]
  - Pyrexia [Unknown]
